FAERS Safety Report 18808656 (Version 1)
Quarter: 2021Q1

REPORT INFORMATION
  Report Type: Spontaneous
  Country: TR (occurrence: TR)
  Receive Date: 20210129
  Receipt Date: 20210129
  Transmission Date: 20210419
  Serious: Yes (Hospitalization)
  Sender: FDA-Public Use
  Company Number: TR-FRESENIUS KABI-FK202100971

PATIENT
  Age: 79 Year
  Sex: Female

DRUGS (1)
  1. GEMCITABINE. [Suspect]
     Active Substance: GEMCITABINE
     Indication: CHEMOTHERAPY
     Dosage: 1400 MG
     Route: 065

REACTIONS (1)
  - Hepatitis B reactivation [Unknown]
